FAERS Safety Report 19509436 (Version 1)
Quarter: 2021Q3

REPORT INFORMATION
  Report Type: Spontaneous
  Country: US (occurrence: US)
  Receive Date: 20210708
  Receipt Date: 20210708
  Transmission Date: 20211014
  Serious: Yes (Other)
  Sender: FDA-Public Use
  Company Number: US-TEVA-2021-US-1928897

PATIENT
  Sex: Female

DRUGS (1)
  1. NORA BE [Suspect]
     Active Substance: NORETHINDRONE
     Dosage: 0.35
     Route: 065

REACTIONS (1)
  - Coeliac disease [Not Recovered/Not Resolved]
